FAERS Safety Report 6061880-X (Version None)
Quarter: 2009Q1

REPORT INFORMATION
  Report Type: 
  Country: None (occurrence: None)
  Receive Date: 20090202
  Receipt Date: 20090120
  Transmission Date: 20090719
  Serious: Yes (Hospitalization)
  Sender: FDA-Public Use
  Company Number: PHHY2009MX02384

PATIENT
  Sex: Female

DRUGS (2)
  1. DIOVAN [Suspect]
     Indication: HYPERTENSION
     Dosage: 160 MG, QD
     Route: 048
     Dates: start: 20070101
  2. GLUCOBAY [Concomitant]
     Indication: DIABETES MELLITUS
     Dosage: 1 DF, QD

REACTIONS (4)
  - ASTHENIA [None]
  - BRONCHITIS [None]
  - SYNCOPE [None]
  - VOMITING [None]
